FAERS Safety Report 4992783-7 (Version None)
Quarter: 2006Q1

REPORT INFORMATION
  Report Type: 
  Country: None (occurrence: None)
  Receive Date: 20060315
  Receipt Date: 20050401
  Transmission Date: 20060701
  Serious: Yes (Hospitalization)
  Sender: FDA-Public Use
  Company Number: US_0503114273

PATIENT
  Age: 45 Year
  Sex: Female
  Weight: 69.1 kg

DRUGS (6)
  1. GEMZAR [Suspect]
     Indication: BREAST CANCER METASTATIC
     Dosage: 1375 MG, INTRAVENOUS
     Route: 042
     Dates: start: 20040921
  2. TAXOTERE [Concomitant]
  3. COUMADIN [Concomitant]
  4. PHENERGAN (PROMETHAZINE HYDROCHLORIDE) [Concomitant]
  5. ANZEMET [Concomitant]
  6. DECADRON [Concomitant]

REACTIONS (4)
  - ANAEMIA [None]
  - NAUSEA [None]
  - THROMBOCYTOPENIA [None]
  - VOMITING [None]
